FAERS Safety Report 9765111 (Version 1)
Quarter: 2013Q4

REPORT INFORMATION
  Report Type: Spontaneous
  Country: US (occurrence: None)
  Receive Date: 20131216
  Receipt Date: 20131216
  Transmission Date: 20140711
  Serious: Yes (Other)
  Sender: FDA-Public Use
  Company Number: None

PATIENT
  Age: 29 Year
  Sex: Male
  Weight: 88.45 kg

DRUGS (5)
  1. KLONOPIN [Suspect]
     Indication: ANXIETY
     Dosage: ONCE DAILY TAKEN BY MOUTH
     Route: 048
     Dates: start: 20131201, end: 20131206
  2. KLONOPIN [Suspect]
     Indication: INITIAL INSOMNIA
     Dosage: ONCE DAILY TAKEN BY MOUTH
     Route: 048
     Dates: start: 20131201, end: 20131206
  3. KLONOPIN [Suspect]
     Indication: PSYCHOMOTOR HYPERACTIVITY
     Dosage: ONCE DAILY TAKEN BY MOUTH
     Route: 048
     Dates: start: 20131201, end: 20131206
  4. PRISTIQ [Suspect]
     Indication: DEPRESSION
     Dosage: 1 PILL ONCE DAILY TAKEN BY MOUTH
     Dates: start: 20130715, end: 20131213
  5. PRISTIQ [Suspect]
     Indication: ANXIETY
     Dosage: 1 PILL ONCE DAILY TAKEN BY MOUTH
     Dates: start: 20130715, end: 20131213

REACTIONS (2)
  - Somnambulism [None]
  - Disorientation [None]
